FAERS Safety Report 7069896-1 (Version None)
Quarter: 2010Q4

REPORT INFORMATION
  Report Type: 
  Country: None (occurrence: None)
  Receive Date: 20101028
  Receipt Date: 20100827
  Transmission Date: 20110411
  Serious: No
  Sender: FDA-Public Use
  Company Number: US-WYE-H15898210

PATIENT
  Sex: Female

DRUGS (9)
  1. EFFEXOR [Suspect]
     Dates: start: 20100101, end: 20100101
  2. EFFEXOR [Suspect]
     Dosage: INCREASED TO 150 MG DAILY ON UNKNOWN DATE
     Dates: start: 20100101, end: 20100101
  3. EFFEXOR [Suspect]
     Dates: start: 20100101, end: 20100101
  4. ZOLOFT [Concomitant]
  5. PAXIL [Concomitant]
  6. WELLBUTRIN [Concomitant]
  7. LYRICA [Suspect]
     Indication: FIBROMYALGIA
     Dosage: 200 MG NIGHTLY AND 100 MG EACH MORNING
     Dates: end: 20100630
  8. LYRICA [Suspect]
     Dates: start: 20090501
  9. CYMBALTA [Concomitant]

REACTIONS (2)
  - TINNITUS [None]
  - WEIGHT INCREASED [None]
